FAERS Safety Report 10348868 (Version 1)
Quarter: 2014Q3

REPORT INFORMATION
  Report Type: Report from Study
  Country: BR (occurrence: BR)
  Receive Date: 20140729
  Receipt Date: 20140729
  Transmission Date: 20150326
  Serious: Yes (Death)
  Sender: FDA-Public Use
  Company Number: BR-ABBVIE-14P-020-1265580-00

PATIENT
  Age: 30 Year
  Sex: Male

DRUGS (1)
  1. HUMIRA [Suspect]
     Active Substance: ADALIMUMAB
     Indication: CROHN^S DISEASE
     Dosage: 2 OR 3 DOSES
     Route: 058

REACTIONS (3)
  - Peripheral swelling [Unknown]
  - Crohn^s disease [Fatal]
  - Gastrointestinal pain [Unknown]

NARRATIVE: CASE EVENT DATE: 20140712
